FAERS Safety Report 7276482-7 (Version None)
Quarter: 2011Q1

REPORT INFORMATION
  Report Type: 
  Country: None (occurrence: None)
  Receive Date: 20110204
  Receipt Date: 20110131
  Transmission Date: 20110831
  Serious: Yes (Other)
  Sender: FDA-Public Use
  Company Number: CA-PFIZER INC-2011022991

PATIENT
  Sex: Female

DRUGS (1)
  1. ADVIL EXTRA STRENGTH [Suspect]
     Indication: MIGRAINE
     Dosage: UNK
     Route: 048

REACTIONS (4)
  - CHOKING [None]
  - DYSPNOEA [None]
  - FOREIGN BODY [None]
  - PANIC REACTION [None]
